FAERS Safety Report 14955584 (Version 1)
Quarter: 2018Q2

REPORT INFORMATION
  Report Type: Spontaneous
  Country: GB (occurrence: GB)
  Receive Date: 20180531
  Receipt Date: 20180531
  Transmission Date: 20180711
  Serious: Yes (Hospitalization)
  Sender: FDA-Public Use
  Company Number: GB-TEVA-2018-GB-900014

PATIENT
  Age: 20 Year
  Sex: Female

DRUGS (9)
  1. ETHAMBUTOL [Suspect]
     Active Substance: ETHAMBUTOL HYDROCHLORIDE
     Indication: PULMONARY TUBERCULOSIS
     Dosage: 1200 MILLIGRAM DAILY; EVERY MORNING
     Route: 048
     Dates: start: 20180310, end: 20180326
  2. PARACETAMOL [Concomitant]
     Active Substance: ACETAMINOPHEN
  3. ONDANSETRON HYDROCHLORIDE. [Suspect]
     Active Substance: ONDANSETRON HYDROCHLORIDE
     Indication: PULMONARY TUBERCULOSIS
     Dosage: 12 MILLIGRAM DAILY; THREE TIMES A DAY
     Route: 048
     Dates: start: 20180310, end: 20180326
  4. SERETIDE [Concomitant]
     Active Substance: FLUTICASONE PROPIONATE\SALMETEROL XINAFOATE
  5. IBUPROFEN. [Concomitant]
     Active Substance: IBUPROFEN
  6. BENADRYL ALLERGY RELIEF [Concomitant]
  7. SALBUTAMOL [Concomitant]
     Active Substance: ALBUTEROL
  8. LORATADINE. [Concomitant]
     Active Substance: LORATADINE
  9. RIFATER [Suspect]
     Active Substance: ISONIAZID\PYRAZINAMIDE\RIFAMPIN
     Indication: PULMONARY TUBERCULOSIS
     Dosage: 6 DOSAGE FORMS DAILY; IN THE MORNING
     Route: 048
     Dates: start: 20180310, end: 20180326

REACTIONS (1)
  - Rash maculo-papular [Not Recovered/Not Resolved]

NARRATIVE: CASE EVENT DATE: 20180317
